FAERS Safety Report 8885623 (Version 1)
Quarter: 2012Q4

REPORT INFORMATION
  Report Type: 
  Country: US (occurrence: US)
  Receive Date: 20121101
  Receipt Date: 20121101
  Transmission Date: 20130627
  Serious: No
  Sender: FDA-Public Use
  Company Number: US-PFIZER INC-2012267423

PATIENT
  Age: 56 Year
  Sex: Male
  Weight: 62.13 kg

DRUGS (2)
  1. VIAGRA [Suspect]
     Indication: SEXUAL DYSFUNCTION
     Dosage: 100mg or 500mg
  2. HYDROCHLOROTHIAZIDE [Suspect]
     Dosage: UNK

REACTIONS (5)
  - Renal disorder [Unknown]
  - Infection [Unknown]
  - Pollakiuria [Unknown]
  - Micturition disorder [Not Recovered/Not Resolved]
  - Memory impairment [Unknown]
